FAERS Safety Report 12172072 (Version 3)
Quarter: 2017Q1

REPORT INFORMATION
  Report Type: Spontaneous
  Country: US (occurrence: US)
  Receive Date: 20160311
  Receipt Date: 20170223
  Transmission Date: 20170428
  Serious: Yes (Other)
  Sender: FDA-Public Use
  Company Number: US-GLAXOSMITHKLINE-US2016034519

PATIENT
  Sex: Female

DRUGS (1)
  1. BENLYSTA [Suspect]
     Active Substance: BELIMUMAB
     Indication: SYSTEMIC LUPUS ERYTHEMATOSUS
     Dosage: UNK UNK, CYC
     Route: 042
     Dates: start: 201504, end: 20160908

REACTIONS (8)
  - Vision blurred [Not Recovered/Not Resolved]
  - Headache [Unknown]
  - Dysuria [Not Recovered/Not Resolved]
  - Nausea [Recovering/Resolving]
  - Impaired quality of life [Unknown]
  - Adverse drug reaction [Unknown]
  - Diarrhoea [Recovering/Resolving]
  - Dizziness [Not Recovered/Not Resolved]
